FAERS Safety Report 5959188-3 (Version None)
Quarter: 2008Q4

REPORT INFORMATION
  Report Type: 
  Country: None (occurrence: None)
  Receive Date: 20081120
  Receipt Date: 20080529
  Transmission Date: 20090506
  Serious: No
  Sender: FDA-Public Use
  Company Number: A0730577A

PATIENT
  Age: 52 Year
  Sex: Female

DRUGS (1)
  1. BUPROPION HCL [Suspect]
     Indication: DEPRESSION
     Dosage: 100MG TWICE PER DAY
     Dates: start: 20080401

REACTIONS (3)
  - EAR PAIN [None]
  - HOT FLUSH [None]
  - PREMENSTRUAL SYNDROME [None]
